FAERS Safety Report 7702354-7 (Version None)
Quarter: 2011Q3

REPORT INFORMATION
  Report Type: 
  Country: None (occurrence: None)
  Receive Date: 20110822
  Receipt Date: 20110819
  Transmission Date: 20111222
  Serious: Yes (Death)
  Sender: FDA-Public Use
  Company Number: PHHY2011GB74549

PATIENT
  Age: 4 Year
  Sex: Female

DRUGS (3)
  1. CLONIDINE [Suspect]
     Indication: PSYCHOMOTOR HYPERACTIVITY
     Dosage: UNK UKN, UNK
  2. QUETIAPINE [Concomitant]
     Dosage: UNK UKN, UNK
  3. VALPROATE SODIUM [Suspect]
     Indication: PSYCHOMOTOR HYPERACTIVITY
     Dosage: UNK UKN, UNK

REACTIONS (1)
  - DEATH [None]
